FAERS Safety Report 5944862-5 (Version None)
Quarter: 2008Q4

REPORT INFORMATION
  Report Type: 
  Country: None (occurrence: None)
  Receive Date: 20081021
  Receipt Date: 20080305
  Transmission Date: 20090506
  Serious: Yes (Other)
  Sender: FDA-Public Use
  Company Number: US-WYE-H02953608

PATIENT
  Age: 35 Year
  Sex: Female
  Weight: 61.29 kg

DRUGS (7)
  1. PREMARIN [Suspect]
     Indication: OESTROGEN REPLACEMENT THERAPY
     Dosage: 1.25 MG DAILY, ORAL, 0.3 MG DAILY ORAL, 0.9 MG DAILY ORAL
     Route: 048
     Dates: start: 19770101, end: 20020101
  2. PREMARIN [Suspect]
     Indication: OESTROGEN REPLACEMENT THERAPY
     Dosage: 1.25 MG DAILY, ORAL, 0.3 MG DAILY ORAL, 0.9 MG DAILY ORAL
     Route: 048
     Dates: start: 20020101, end: 20050101
  3. PREMARIN [Suspect]
     Indication: OESTROGEN REPLACEMENT THERAPY
     Dosage: 1.25 MG DAILY, ORAL, 0.3 MG DAILY ORAL, 0.9 MG DAILY ORAL
     Route: 048
     Dates: start: 20050101
  4. . [Concomitant]
  5. . [Concomitant]
  6. FLAXSEED (FLAXSEED) [Concomitant]
  7. MULTIVITAMINS, PLAIN (MULTIVITAMIN, PLAIN) [Concomitant]

REACTIONS (8)
  - DRUG EFFECT DECREASED [None]
  - FATIGUE [None]
  - FIBROMYALGIA [None]
  - GALLBLADDER DISORDER [None]
  - MUSCLE TWITCHING [None]
  - PALPITATIONS [None]
  - PARAESTHESIA [None]
  - PARVOVIRUS INFECTION [None]
